FAERS Safety Report 4309781-9 (Version None)
Quarter: 2004Q1

REPORT INFORMATION
  Report Type: 
  Country: None (occurrence: None)
  Receive Date: 20040301
  Receipt Date: 20030310
  Transmission Date: 20041129
  Serious: Yes (Other)
  Sender: FDA-Public Use
  Company Number: US_030292743

PATIENT
  Age: 70 Year
  Sex: Male

DRUGS (10)
  1. PERMAX [Suspect]
     Indication: PARKINSON'S DISEASE
     Dosage: 0.875 MG/3 DAY
     Dates: start: 19970205, end: 19991227
  2. ASPIRIN [Concomitant]
  3. TICLID [Concomitant]
  4. PLAVIX [Concomitant]
  5. SPIRONOLACTONE [Concomitant]
  6. SINEMET [Concomitant]
  7. MIRAPEX (MIRAPEX) [Concomitant]
  8. PRILOSEC [Concomitant]
  9. MEVACOR [Concomitant]
  10. COGENTIN (BENXATROPINE MESILATE) [Concomitant]

REACTIONS (1)
  - CARDIAC VALVE DISEASE [None]
